FAERS Safety Report 12032063 (Version 1)
Quarter: 2016Q1

REPORT INFORMATION
  Report Type: Report from Study
  Country: US (occurrence: US)
  Receive Date: 20160207
  Receipt Date: 20160207
  Transmission Date: 20160526
  Serious: No
  Sender: FDA-Public Use
  Company Number: US-ABBVIE-15K-163-1511495-00

PATIENT
  Age: 52 Year
  Sex: Male

DRUGS (2)
  1. HUMIRA [Suspect]
     Active Substance: ADALIMUMAB
     Indication: PSORIASIS
     Route: 058
     Dates: start: 20150630
  2. CLOBETASOL [Suspect]
     Active Substance: CLOBETASOL
     Indication: PRODUCT USED FOR UNKNOWN INDICATION
     Route: 065

REACTIONS (3)
  - Skin fissures [Not Recovered/Not Resolved]
  - Rash generalised [Unknown]
  - Dry skin [Unknown]

NARRATIVE: CASE EVENT DATE: 2015
